FAERS Safety Report 13756728 (Version 12)
Quarter: 2018Q2

REPORT INFORMATION
  Report Type: Report from Study
  Country: US (occurrence: US)
  Receive Date: 20170714
  Receipt Date: 20180426
  Transmission Date: 20180711
  Serious: Yes (Other)
  Sender: FDA-Public Use
  Company Number: US-ALEXION PHARMACEUTICALS INC.-A201707748

PATIENT
  Sex: Female

DRUGS (2)
  1. SOLIRIS [Suspect]
     Active Substance: ECULIZUMAB
     Indication: PRODUCT USED FOR UNKNOWN INDICATION
     Dosage: UNK
     Route: 042
  2. SOLIRIS [Suspect]
     Active Substance: ECULIZUMAB
     Dosage: UNK
     Route: 065

REACTIONS (13)
  - Dementia Alzheimer^s type [Unknown]
  - Blood lactate dehydrogenase increased [Unknown]
  - Platelet count abnormal [Unknown]
  - Confusional state [Unknown]
  - White blood cell count decreased [Unknown]
  - Stress [Unknown]
  - Haematocrit abnormal [Unknown]
  - Malaise [Unknown]
  - Laboratory test abnormal [Unknown]
  - Abdominal pain [Unknown]
  - Constipation [Recovering/Resolving]
  - Haemoglobin abnormal [Unknown]
  - Memory impairment [Unknown]

NARRATIVE: CASE EVENT DATE: 201707
